FAERS Safety Report 6877840-2 (Version None)
Quarter: 2010Q3

REPORT INFORMATION
  Report Type: 
  Country: None (occurrence: None)
  Receive Date: 20100727
  Receipt Date: 20070627
  Transmission Date: 20110219
  Serious: No
  Sender: FDA-Public Use
  Company Number: US-PFIZER INC-2007032130

PATIENT
  Sex: Female
  Weight: 98.43 kg

DRUGS (12)
  1. CELEBREX [Suspect]
     Indication: ARTHRITIS
     Dosage: 200-400MG
     Route: 048
     Dates: start: 20031105
  2. SYNTHROID [Concomitant]
  3. ZOCOR [Concomitant]
  4. METFORMIN HCL [Concomitant]
  5. GLIMEPIRIDE [Concomitant]
  6. AMITRIPTYLINE HYDROCHLORIDE [Concomitant]
  7. ZOMIG [Concomitant]
  8. IMITREX [Concomitant]
  9. FLEXERIL [Concomitant]
  10. ACETYLSALICYLIC ACID SRT [Concomitant]
  11. GLUCOSAMINE [Concomitant]
  12. VITAMINS [Concomitant]

REACTIONS (1)
  - ARTHRALGIA [None]
